FAERS Safety Report 10102210 (Version 2)
Quarter: 2014Q2

REPORT INFORMATION
  Report Type: Spontaneous
  Country: CH (occurrence: CH)
  Receive Date: 20140424
  Receipt Date: 20140424
  Transmission Date: 20141212
  Serious: Yes (Other)
  Sender: FDA-Public Use
  Company Number: CH-US-EMD SERONO, INC.-7282524

PATIENT
  Sex: Female

DRUGS (8)
  1. GONAL-F [Suspect]
     Indication: ASSISTED FERTILISATION
     Dates: start: 20140112
  2. GONAL-F [Suspect]
     Dates: start: 20140117, end: 20140127
  3. GONAL-F [Suspect]
     Dates: start: 20140213
  4. GONAL-F [Suspect]
     Dates: start: 20140218
  5. GONAL-F [Suspect]
     Dates: start: 20140225, end: 20140225
  6. PRIMOLUT N /00044901/ [Suspect]
     Indication: ASSISTED FERTILISATION
     Route: 048
     Dates: start: 201401, end: 201403
  7. CHORIOMON [Suspect]
     Indication: ASSISTED FERTILISATION
     Dates: start: 20140127, end: 20140227
  8. UTROGESTAN [Suspect]
     Indication: ASSISTED FERTILISATION
     Dates: start: 201401, end: 201403

REACTIONS (1)
  - Multiple sclerosis relapse [Recovering/Resolving]
